FAERS Safety Report 20735161 (Version 2)
Quarter: 2022Q2

REPORT INFORMATION
  Report Type: Spontaneous
  Country: US (occurrence: US)
  Receive Date: 20220421
  Receipt Date: 20220503
  Transmission Date: 20220721
  Serious: Yes (Hospitalization)
  Sender: FDA-Public Use
  Company Number: US-TEVA-2022-US-2028325

PATIENT
  Age: 28 Year
  Sex: Female

DRUGS (1)
  1. CLONIDINE [Suspect]
     Active Substance: CLONIDINE
     Indication: Suicide attempt
     Dosage: FORMULATION: PILLS. THE PATIENT INGESTED 30 PILLS (OVERDOSE)
     Route: 048

REACTIONS (4)
  - Left ventricular failure [Recovered/Resolved]
  - Acute myocardial infarction [Recovered/Resolved]
  - Arteriospasm coronary [Recovered/Resolved]
  - Intentional overdose [Unknown]
